FAERS Safety Report 10024182 (Version 1)
Quarter: 2014Q1

REPORT INFORMATION
  Report Type: Spontaneous
  Country: US (occurrence: None)
  Receive Date: 20140318
  Receipt Date: 20140318
  Transmission Date: 20141002
  Serious: Yes (Other)
  Sender: FDA-Public Use
  Company Number: None

PATIENT
  Age: 39 Year
  Sex: Female
  Weight: 80 kg

DRUGS (1)
  1. LIPTRUZET [Suspect]
     Indication: HIGH DENSITY LIPOPROTEIN NORMAL
     Dates: start: 201312

REACTIONS (2)
  - Migraine [None]
  - Fatigue [None]
